FAERS Safety Report 4678595-2 (Version None)
Quarter: 2005Q2

REPORT INFORMATION
  Report Type: 
  Country: None (occurrence: None)
  Receive Date: 20050527
  Receipt Date: 20050519
  Transmission Date: 20051028
  Serious: Yes (Disabling)
  Sender: FDA-Public Use
  Company Number: 05H-153-0299357-00

PATIENT
  Age: 42 Year
  Sex: Female

DRUGS (6)
  1. VECURONIUM BROMIDE [Suspect]
     Indication: GENERAL ANAESTHESIA
     Dosage: 5 MG, INTRAVENOUS
     Route: 042
  2. PENTOTHAL [Suspect]
     Indication: GENERAL ANAESTHESIA
     Dosage: 250 MG, INTRAVENOUS
     Route: 042
  3. FENTANYL [Suspect]
     Indication: GENERAL ANAESTHESIA
     Dosage: 100 MCG, INTRAVENOUS
     Route: 042
  4. SEVOFLURANE [Suspect]
     Indication: MAINTENANCE OF ANAESTHESIA
     Dosage: INHALATION
     Route: 055
  5. DEXTROSE 5% AND SODIUM CHLORIDE 0.45% IN PLASTIC CONTAINER [Concomitant]
  6. OXYGEN [Concomitant]

REACTIONS (4)
  - DEAFNESS NEUROSENSORY [None]
  - DEAFNESS UNILATERAL [None]
  - POST PROCEDURAL COMPLICATION [None]
  - TINNITUS [None]
